FAERS Safety Report 8880093 (Version 1)
Quarter: 2012Q4

REPORT INFORMATION
  Report Type: 
  Country: US (occurrence: US)
  Receive Date: 20121101
  Receipt Date: 20121101
  Transmission Date: 20130627
  Serious: No
  Sender: FDA-Public Use
  Company Number: US-TARO-2011P1009601

PATIENT
  Age: 58 Year
  Sex: Female
  Weight: 38.56 kg

DRUGS (6)
  1. PHENYTOIN SODIUM EXTENDED CAPSULES USP 100MG [Suspect]
     Route: 048
     Dates: start: 201106, end: 20110917
  2. PHENYTOIN SODIUM EXTENDED CAPSULES USP 100MG [Suspect]
     Route: 048
     Dates: start: 20110918, end: 20111005
  3. PHENYTOIN SODIUM EXTENDED CAPSULES USP 100MG [Suspect]
     Dates: start: 20111006, end: 20111006
  4. PHENYTOIN SODIUM EXTENDED CAPSULES USP 100MG [Suspect]
     Dates: start: 20111007, end: 201110
  5. PHENYTOIN SODIUM EXTENDED CAPSULES USP 100MG [Suspect]
     Dates: start: 201110
  6. PRIMIDONE [Concomitant]
     Route: 048

REACTIONS (11)
  - Feeling abnormal [Recovered/Resolved]
  - Bradyphrenia [Recovered/Resolved]
  - Movement disorder [Recovered/Resolved]
  - Coordination abnormal [Recovered/Resolved]
  - Activities of daily living impaired [Recovered/Resolved]
  - Headache [Recovering/Resolving]
  - Anticonvulsant drug level decreased [Unknown]
  - Underdose [Not Recovered/Not Resolved]
  - Dizziness [Recovered/Resolved]
  - Burning sensation [Not Recovered/Not Resolved]
  - Paraesthesia [Unknown]
